FAERS Safety Report 9556177 (Version 2)
Quarter: 2013Q4

REPORT INFORMATION
  Report Type: Spontaneous
  Country: FR (occurrence: FR)
  Receive Date: 20130926
  Receipt Date: 20131224
  Transmission Date: 20140711
  Serious: Yes (Hospitalization, Other)
  Sender: FDA-Public Use
  Company Number: FR-JNJFOC-20130914484

PATIENT
  Age: 85 Year
  Sex: Female

DRUGS (12)
  1. XARELTO [Suspect]
     Indication: CEREBROVASCULAR ACCIDENT PROPHYLAXIS
     Route: 048
     Dates: start: 201211, end: 20130413
  2. XARELTO [Suspect]
     Indication: CEREBROVASCULAR ACCIDENT PROPHYLAXIS
     Route: 048
     Dates: start: 2013, end: 20130919
  3. XARELTO [Suspect]
     Indication: ATRIAL FIBRILLATION
     Route: 048
     Dates: start: 201211, end: 20130413
  4. XARELTO [Suspect]
     Indication: ATRIAL FIBRILLATION
     Route: 048
     Dates: start: 2013, end: 20130919
  5. MOTILIUM [Concomitant]
     Route: 048
  6. LEVOTHYROX [Concomitant]
     Indication: HYPOTHYROIDISM
     Route: 048
  7. COVERSYL [Concomitant]
     Indication: HYPERTENSION
     Route: 048
  8. DIFFU K [Concomitant]
     Indication: HYPOKALAEMIA
     Route: 048
  9. FUROSEMIDE [Concomitant]
     Indication: HYPERTENSION
     Route: 048
  10. AUGMENTIN [Concomitant]
     Indication: PNEUMONIA
     Dosage: 1G/125MG 3/DAY
     Route: 048
     Dates: start: 20130411, end: 20130421
  11. TARDYFERON [Concomitant]
     Route: 048
  12. ALDACTONE [Concomitant]
     Indication: HYPERTENSION
     Route: 048

REACTIONS (4)
  - Bleeding varicose vein [Recovered/Resolved]
  - Epistaxis [Not Recovered/Not Resolved]
  - Anaemia [Recovered/Resolved]
  - Fall [Recovered/Resolved]
